FAERS Safety Report 9618387 (Version 1)
Quarter: 2013Q4

REPORT INFORMATION
  Report Type: Spontaneous
  Country: US (occurrence: US)
  Receive Date: 20131014
  Receipt Date: 20131014
  Transmission Date: 20140711
  Serious: Yes (Other)
  Sender: FDA-Public Use
  Company Number: US-JNJFOC-20131002034

PATIENT
  Sex: 0

DRUGS (1)
  1. BENADRYL [Suspect]
     Indication: HALLUCINATION
     Route: 065

REACTIONS (3)
  - Hallucination [Recovered/Resolved]
  - Delirium [Unknown]
  - Off label use [Unknown]
